FAERS Safety Report 11030201 (Version 2)
Quarter: 2015Q4

REPORT INFORMATION
  Report Type: Spontaneous
  Country: US (occurrence: US)
  Receive Date: 20150415
  Receipt Date: 20151207
  Transmission Date: 20160304
  Serious: No
  Sender: FDA-Public Use
  Company Number: US-LUPIN PHARMACEUTICALS INC.-E2B_00003385

PATIENT
  Age: 39 Year
  Sex: Female
  Weight: 68.55 kg

DRUGS (4)
  1. LEVONORGESTREL AND ETHINYL ESTRADIOL TABLETS USP (0.1 MG/0.02 MG) AND [Suspect]
     Active Substance: ETHINYL ESTRADIOL\LEVONORGESTREL
     Indication: MENSTRUAL CYCLE MANAGEMENT
  2. LOSEASONIQUE [Concomitant]
     Active Substance: ETHINYL ESTRADIOL\LEVONORGESTREL
     Indication: PRODUCT USED FOR UNKNOWN INDICATION
     Route: 048
  3. LEVONORGESTREL AND ETHINYL ESTRADIOL TABLETS USP (0.1 MG/0.02 MG) AND [Suspect]
     Active Substance: ETHINYL ESTRADIOL\LEVONORGESTREL
     Indication: CONTRACEPTION
     Dates: start: 201503, end: 20150312
  4. CALCIUM [Concomitant]
     Active Substance: CALCIUM
     Indication: PRODUCT USED FOR UNKNOWN INDICATION
     Route: 065

REACTIONS (8)
  - Polyuria [Recovered/Resolved]
  - Nausea [Recovered/Resolved]
  - Acne [Recovered/Resolved]
  - Abdominal distension [Recovered/Resolved]
  - Malaise [Recovered/Resolved]
  - Acne cystic [Recovering/Resolving]
  - Metrorrhagia [Recovered/Resolved]
  - Dizziness [Recovered/Resolved]

NARRATIVE: CASE EVENT DATE: 201503
